FAERS Safety Report 12984187 (Version 2)
Quarter: 2016Q4

REPORT INFORMATION
  Report Type: Spontaneous
  Country: FR (occurrence: FR)
  Receive Date: 20161129
  Receipt Date: 20161207
  Transmission Date: 20170207
  Serious: Yes (Life-Threatening)
  Sender: FDA-Public Use
  Company Number: FR-TEVA-713986ROM

PATIENT
  Age: 56 Year
  Sex: Male

DRUGS (34)
  1. HYDROCORTISONE. [Concomitant]
     Active Substance: HYDROCORTISONE
     Dosage: 60 MILLIGRAM DAILY;
     Route: 048
     Dates: start: 20161013, end: 20161015
  2. CEFTAZIDIME. [Concomitant]
     Active Substance: CEFTAZIDIME
     Dosage: 4 GRAM DAILY;
     Dates: start: 20161014
  3. TARGOCID [Concomitant]
     Active Substance: TEICOPLANIN
     Dosage: 400 MILLIGRAM DAILY;
     Dates: start: 20161016
  4. FLUCONAZOLE. [Concomitant]
     Active Substance: FLUCONAZOLE
     Indication: PROPHYLAXIS
     Dates: start: 201610
  5. TRAMADOL. [Concomitant]
     Active Substance: TRAMADOL
     Dates: start: 201610
  6. GLUCOSE 5 POUR CENT B. BRAUN [Suspect]
     Active Substance: DEXTROSE
     Indication: PROPHYLAXIS AGAINST DEHYDRATION
     Dosage: 2 LITERS DAILY;
     Route: 041
     Dates: start: 20161013, end: 20161018
  7. HYDROCORTISONE. [Concomitant]
     Active Substance: HYDROCORTISONE
     Dosage: 200 MILLIGRAM DAILY;
     Route: 048
     Dates: start: 20161017
  8. METHYLPREDNISOLONE. [Concomitant]
     Active Substance: METHYLPREDNISOLONE
     Dosage: 40 MILLIGRAM DAILY;
     Dates: start: 20161015
  9. LACTULOSE. [Concomitant]
     Active Substance: LACTULOSE
     Dates: start: 201610
  10. METHYLPREDNISOLONE. [Concomitant]
     Active Substance: METHYLPREDNISOLONE
     Dosage: 50 MILLIGRAM DAILY;
     Dates: start: 20161016, end: 20161017
  11. ALLOPURINOL. [Concomitant]
     Active Substance: ALLOPURINOL
     Dates: start: 201610
  12. FLUDARABINE TEVA [Suspect]
     Active Substance: FLUDARABINE PHOSPHATE
     Indication: STEM CELL TRANSPLANT
     Dosage: 58 MILLIGRAM DAILY;
     Route: 042
     Dates: start: 20161007, end: 20161011
  13. CICLOSPORIN [Concomitant]
     Active Substance: CYCLOSPORINE
     Indication: IMMUNOSUPPRESSANT DRUG THERAPY
     Dates: start: 20161018
  14. AMIKACIN [Concomitant]
     Active Substance: AMIKACIN
     Dosage: 250 MILLIGRAM DAILY;
     Dates: start: 20161013, end: 20161016
  15. ZELITREX [Concomitant]
     Active Substance: VALACYCLOVIR HYDROCHLORIDE
     Dates: start: 201610
  16. ENDOXAN [Suspect]
     Active Substance: CYCLOPHOSPHAMIDE
     Dosage: 4050 MILLIGRAM DAILY;
     Dates: start: 20161016, end: 20161017
  17. ZOPHREN [Concomitant]
     Active Substance: ONDANSETRON
     Dates: start: 201610
  18. MAGNESIUM SULFATE. [Concomitant]
     Active Substance: MAGNESIUM SULFATE
     Dates: start: 201610
  19. CHOLURSO [Concomitant]
     Active Substance: URSODIOL
     Dates: start: 201610
  20. ENDOXAN [Suspect]
     Active Substance: CYCLOPHOSPHAMIDE
     Indication: STEM CELL TRANSPLANT
     Dosage: 1175 MILLIGRAM DAILY;
     Route: 042
     Dates: start: 20161007, end: 20161008
  21. METOCLOPRAMIDE. [Concomitant]
     Active Substance: METOCLOPRAMIDE
     Dates: start: 201610
  22. FUROSEMIDE. [Concomitant]
     Active Substance: FUROSEMIDE
     Dosage: 60 MILLIGRAM DAILY;
     Dates: start: 20161016, end: 20161016
  23. FUROSEMIDE. [Concomitant]
     Active Substance: FUROSEMIDE
     Dosage: 60 MILLIGRAM DAILY;
     Dates: start: 20161018, end: 20161018
  24. CHLORURE DE SODIUM 0.9 POUR CENT B. BRAUN [Suspect]
     Active Substance: SODIUM CHLORIDE
     Indication: PROPHYLAXIS AGAINST DEHYDRATION
     Dosage: 1 LITERS DAILY;
     Route: 041
     Dates: start: 20161015, end: 20161018
  25. MYFORTIC [Concomitant]
     Active Substance: MYCOPHENOLATE SODIUM
     Indication: IMMUNOSUPPRESSANT DRUG THERAPY
     Dates: start: 20161018
  26. IRBESARTAN/HYDROCHLOROTHIAZIDE [Concomitant]
     Active Substance: HYDROCHLOROTHIAZIDE\IRBESARTAN
     Dates: start: 20161014, end: 20161016
  27. SERESTA [Concomitant]
     Active Substance: OXAZEPAM
     Dates: start: 201610
  28. FUROSEMIDE. [Concomitant]
     Active Substance: FUROSEMIDE
     Dosage: 20 MILLIGRAM DAILY;
     Dates: start: 20161015, end: 20161015
  29. FUROSEMIDE. [Concomitant]
     Active Substance: FUROSEMIDE
     Dosage: 40 MILLIGRAM DAILY;
     Dates: start: 20161017, end: 20161017
  30. HYDROCORTISONE. [Concomitant]
     Active Substance: HYDROCORTISONE
     Dosage: 340 MILLIGRAM DAILY;
     Route: 048
     Dates: start: 20161016, end: 20161016
  31. CEFTRIAXONE. [Concomitant]
     Active Substance: CEFTRIAXONE
     Dosage: 2 GRAM DAILY;
     Dates: start: 20161013, end: 20161014
  32. TARGOCID [Concomitant]
     Active Substance: TEICOPLANIN
     Dosage: 800 MILLIGRAM DAILY;
     Dates: start: 20161015, end: 20161015
  33. HEPARIN [Concomitant]
     Active Substance: HEPARIN SODIUM
     Dates: start: 201610
  34. PARACETAMOL [Concomitant]
     Active Substance: ACETAMINOPHEN
     Dates: start: 201610

REACTIONS (3)
  - Cardiac failure [Recovered/Resolved]
  - Acute pulmonary oedema [Recovered/Resolved]
  - Fluid overload [Recovered/Resolved]

NARRATIVE: CASE EVENT DATE: 201610
